FAERS Safety Report 9815899 (Version 6)
Quarter: 2014Q1

REPORT INFORMATION
  Report Type: Spontaneous
  Country: US (occurrence: US)
  Receive Date: 20140114
  Receipt Date: 20140212
  Transmission Date: 20141002
  Serious: No
  Sender: FDA-Public Use
  Company Number: US-GILEAD-2014-0092159

PATIENT
  Sex: Female

DRUGS (3)
  1. LETAIRIS [Suspect]
     Indication: PULMONARY ARTERIAL HYPERTENSION
     Dosage: 10 MG, QD
     Route: 065
     Dates: start: 20131113
  2. TYVASO [Concomitant]
  3. ADCIRCA [Concomitant]

REACTIONS (8)
  - Flatulence [Unknown]
  - Pain in extremity [Not Recovered/Not Resolved]
  - Localised intraabdominal fluid collection [Unknown]
  - Decreased appetite [Unknown]
  - Dysgeusia [Unknown]
  - Abdominal distension [Not Recovered/Not Resolved]
  - Local swelling [Recovering/Resolving]
  - Paraesthesia oral [Unknown]
